FAERS Safety Report 15480777 (Version 1)
Quarter: 2018Q4

REPORT INFORMATION
  Report Type: Report from Study
  Country: DE (occurrence: DE)
  Receive Date: 20181010
  Receipt Date: 20181010
  Transmission Date: 20190205
  Serious: Yes (Other)
  Sender: FDA-Public Use
  Company Number: DE-ROCHE-2194796

PATIENT
  Age: 82 Year
  Sex: Male
  Weight: 69 kg

DRUGS (10)
  1. RANIBIZUMAB. [Suspect]
     Active Substance: RANIBIZUMAB
     Dosage: 0.5 MG, RIGHT EYE
     Route: 031
     Dates: start: 20161108
  2. RANIBIZUMAB. [Suspect]
     Active Substance: RANIBIZUMAB
     Indication: NEOVASCULAR AGE-RELATED MACULAR DEGENERATION
     Dosage: RIGHT EYE
     Route: 031
     Dates: start: 20160324
  3. RANIBIZUMAB. [Suspect]
     Active Substance: RANIBIZUMAB
     Dosage: 0.5 MG, RIGHT EYE
     Route: 031
     Dates: start: 20170207
  4. RANIBIZUMAB. [Suspect]
     Active Substance: RANIBIZUMAB
     Dosage: 0.5 MG, RIGHT EYE
     Route: 031
     Dates: start: 20160426
  5. RANIBIZUMAB. [Suspect]
     Active Substance: RANIBIZUMAB
     Dosage: 0.5 MG, RIGHT EYE
     Route: 031
     Dates: start: 20170404
  6. RANIBIZUMAB. [Suspect]
     Active Substance: RANIBIZUMAB
     Dosage: 0.5 MG, RIGHT EYE
     Route: 031
     Dates: start: 20160531, end: 20160531
  7. RANIBIZUMAB. [Suspect]
     Active Substance: RANIBIZUMAB
     Dosage: 0.5 MG, RIGHT EYE
     Route: 031
     Dates: start: 20161006
  8. RANIBIZUMAB. [Suspect]
     Active Substance: RANIBIZUMAB
     Dosage: 0.5 MG, RIGHT EYE
     Route: 031
     Dates: start: 20170302
  9. RANIBIZUMAB. [Suspect]
     Active Substance: RANIBIZUMAB
     Dosage: RIGHT EYE
     Route: 031
     Dates: start: 20170718
  10. RANIBIZUMAB. [Suspect]
     Active Substance: RANIBIZUMAB
     Dosage: 0.5 MG, RIGHT EYE
     Route: 031
     Dates: start: 20160823

REACTIONS (2)
  - Subretinal fluid [Recovered/Resolved]
  - Subretinal fluid [Recovered/Resolved]

NARRATIVE: CASE EVENT DATE: 20160805
